FAERS Safety Report 20144668 (Version 1)
Quarter: 2021Q4

REPORT INFORMATION
  Report Type: Spontaneous
  Country: US (occurrence: US)
  Receive Date: 20211203
  Receipt Date: 20211203
  Transmission Date: 20220303
  Serious: No
  Sender: FDA-Public Use
  Company Number: US-MICRO LABS LIMITED-ML2021-01896

PATIENT
  Sex: Female
  Weight: 66.738 kg

DRUGS (15)
  1. DORZOLAMIDE\TIMOLOL [Suspect]
     Active Substance: DORZOLAMIDE\TIMOLOL
     Indication: Glaucoma
     Dosage: 22.3 MG/6.8 MG PER ML; 1 DROP TWICE A DAY IN RIGHT EYE
  2. DORZOLAMIDE\TIMOLOL [Suspect]
     Active Substance: DORZOLAMIDE\TIMOLOL
     Indication: Uveitis
  3. DORZOLAMIDE\TIMOLOL [Suspect]
     Active Substance: DORZOLAMIDE\TIMOLOL
     Indication: Inflammation
  4. ASPIRIN [Concomitant]
     Active Substance: ASPIRIN
     Indication: Headache
  5. ENALAPRIL [Concomitant]
     Active Substance: ENALAPRIL
     Indication: Blood pressure measurement
  6. CARAFATE [Concomitant]
     Active Substance: SUCRALFATE
  7. CLONAZEPAM [Concomitant]
     Active Substance: CLONAZEPAM
  8. VITAMIN B [Concomitant]
     Active Substance: VITAMIN B
  9. VITAMIN E [Concomitant]
     Active Substance: .ALPHA.-TOCOPHEROL
  10. Multimineral [Concomitant]
  11. ALBUTEROL [Concomitant]
     Active Substance: ALBUTEROL
  12. BRIMONIDINE [Concomitant]
     Active Substance: BRIMONIDINE TARTRATE
  13. CYCLOGYL [Concomitant]
     Active Substance: CYCLOPENTOLATE HYDROCHLORIDE
  14. Iris eye drops [Concomitant]
  15. Metholone eye drops [Concomitant]

REACTIONS (7)
  - Vision blurred [Not Recovered/Not Resolved]
  - Lacrimation increased [Not Recovered/Not Resolved]
  - Dry eye [Not Recovered/Not Resolved]
  - Eyelid margin crusting [Not Recovered/Not Resolved]
  - Eye pain [Not Recovered/Not Resolved]
  - Swelling face [Not Recovered/Not Resolved]
  - Inappropriate schedule of product administration [Unknown]
